FAERS Safety Report 4934037-0 (Version None)
Quarter: 2006Q1

REPORT INFORMATION
  Report Type: 
  Country: None (occurrence: None)
  Receive Date: 20060303
  Receipt Date: 20060221
  Transmission Date: 20060701
  Serious: Yes (Life-Threatening, Other)
  Sender: FDA-Public Use
  Company Number: HQWYE089201MAR06

PATIENT
  Sex: Female

DRUGS (4)
  1. RAPAMUNE [Suspect]
     Indication: IMMUNOSUPPRESSION
     Dosage: SEE IMAGE, ORAL
     Route: 048
  2. PROGRAF [Suspect]
     Indication: IMMUNOSUPPRESSION
     Dosage: TWICE DAILY TO ATTAIN TROUGH LEVELS OF 3-6
  3. ZENAPAX [Suspect]
     Indication: IMMUNOSUPPRESSION
     Dosage: 1 MG/KG EVERY 14 DAYS X 5 DOSES (STARTING ON DAY OF TRANSPLANT), INTRAVENOUS
     Route: 042
  4. SULFAMETHOXAZOLE + TRIMETHOPRIM [Concomitant]

REACTIONS (3)
  - ALOPECIA AREATA [None]
  - ECZEMA [None]
  - PRURITUS [None]
